FAERS Safety Report 16937614 (Version 2)
Quarter: 2019Q4

REPORT INFORMATION
  Report Type: Spontaneous
  Country: AU (occurrence: AU)
  Receive Date: 20191018
  Receipt Date: 20191120
  Transmission Date: 20200122
  Serious: Yes (Other)
  Sender: FDA-Public Use
  Company Number: AU-MYLANLABS-2019M1098279

PATIENT
  Age: 60 Year
  Sex: Male
  Weight: 69 kg

DRUGS (8)
  1. COLOXYL WITH SENNA [Concomitant]
     Active Substance: DOCUSATE SODIUM\SENNOSIDES A AND B
     Dosage: 2 TABLETS TWICE DAILY
  2. SODIUM VALPROATE [Concomitant]
     Active Substance: VALPROATE SODIUM
     Dosage: 100 MILLIGRAM, PM
  3. LORAZEPAM. [Concomitant]
     Active Substance: LORAZEPAM
     Dosage: 0.5 MILLIGRAM, AM
  4. RESOURCE PLUS [Concomitant]
     Dosage: 237 MILLILITER, BID
  5. CLOZARIL [Suspect]
     Active Substance: CLOZAPINE
     Indication: SCHIZOPHRENIA
     Dosage: 300 MILLIGRAM, PM
     Route: 048
     Dates: start: 20170714
  6. BETAMIN                            /00056102/ [Concomitant]
     Dosage: 1 TABLET IN MORNING UNK, AM
  7. VITAMINORUM                        /00067501/ [Concomitant]
     Dosage: 1 TABLET IN THE MORNING UNK, AM
  8. FLUVOXAMINE [Concomitant]
     Active Substance: FLUVOXAMINE
     Dosage: 100 MILLIGRAM, AM

REACTIONS (7)
  - Troponin increased [Not Recovered/Not Resolved]
  - Electrocardiogram ST segment depression [Unknown]
  - Left ventricular hypertrophy [Unknown]
  - Tricuspid valve incompetence [Unknown]
  - Aortic valve sclerosis [Unknown]
  - Mitral valve incompetence [Unknown]
  - Left atrial enlargement [Unknown]

NARRATIVE: CASE EVENT DATE: 2019
